FAERS Safety Report 4280369-1 (Version None)
Quarter: 2004Q1

REPORT INFORMATION
  Report Type: 
  Country: None (occurrence: None)
  Receive Date: 20040126
  Receipt Date: 20040116
  Transmission Date: 20041129
  Serious: Yes (Other)
  Sender: FDA-Public Use
  Company Number: 2004-01-1170

PATIENT
  Age: 43 Year
  Sex: Female

DRUGS (1)
  1. NASONEX [Suspect]
     Indication: RHINITIS ALLERGIC
     Dosage: NASAL SPRAY
     Route: 045

REACTIONS (1)
  - CATARACT [None]
